FAERS Safety Report 7156190-3 (Version None)
Quarter: 2010Q4

REPORT INFORMATION
  Report Type: 
  Country: None (occurrence: None)
  Receive Date: 20101214
  Receipt Date: 20101207
  Transmission Date: 20110411
  Serious: Yes (Hospitalization)
  Sender: FDA-Public Use
  Company Number: US-US-EMD SERONO, INC.-235008J09USA

PATIENT
  Sex: Female

DRUGS (2)
  1. REBIF [Suspect]
     Indication: MULTIPLE SCLEROSIS
     Route: 058
     Dates: start: 20071215
  2. UNSPECIFIED MEDICATIONS [Concomitant]

REACTIONS (2)
  - GASTROENTERITIS VIRAL [None]
  - INTERVERTEBRAL DISC PROTRUSION [None]
